FAERS Safety Report 9326888 (Version 2)
Quarter: 2014Q1

REPORT INFORMATION
  Report Type: Spontaneous
  Country: US (occurrence: US)
  Receive Date: 20130604
  Receipt Date: 20140212
  Transmission Date: 20141002
  Serious: Yes (Disabling, Other)
  Sender: FDA-Public Use
  Company Number: US-PFIZER INC-2012277719

PATIENT
  Age: 60 Year
  Sex: Female

DRUGS (5)
  1. CORTEF [Suspect]
     Dosage: 60 MG, 1X/DAY
     Dates: start: 20121106, end: 20130407
  2. LEVOXYL [Suspect]
     Dosage: 100 UG, DAILY
     Dates: start: 20121106, end: 20130407
  3. PRISTIQ [Suspect]
     Indication: EMOTIONAL DISORDER
     Dosage: 100 MG, DAILY (EVERY MORNING)
     Route: 048
     Dates: start: 20121106, end: 20130407
  4. ADDERALL [Concomitant]
     Dosage: UNK
  5. KLONOPIN [Concomitant]
     Dosage: UNK

REACTIONS (1)
  - Hypoacusis [Unknown]
